FAERS Safety Report 21530333 (Version 3)
Quarter: 2023Q1

REPORT INFORMATION
  Report Type: Spontaneous
  Country: CA (occurrence: CA)
  Receive Date: 20221031
  Receipt Date: 20230125
  Transmission Date: 20230418
  Serious: Yes (Other)
  Sender: FDA-Public Use
  Company Number: CA-PFIZER INC-2021854179

PATIENT
  Age: 73 Year
  Sex: Female
  Weight: 56 kg

DRUGS (15)
  1. RUXIENCE [Suspect]
     Active Substance: RITUXIMAB-PVVR
     Indication: Polymyositis
     Dosage: 500MG X 1 DOSE
     Route: 042
     Dates: start: 20211101, end: 20211101
  2. RUXIENCE [Suspect]
     Active Substance: RITUXIMAB-PVVR
     Indication: Interstitial lung disease
     Dosage: 500MG X 1 DOSE
     Route: 042
     Dates: start: 20220517, end: 20220517
  3. RUXIENCE [Suspect]
     Active Substance: RITUXIMAB-PVVR
     Dosage: 500MG EVERY 6 MONTHS SINGLE DOSE
     Route: 042
     Dates: start: 20230119, end: 20230119
  4. CALCIUM [Concomitant]
     Active Substance: CALCIUM
     Dosage: 650 MG
     Route: 048
  5. CETIRIZINE HCL [Concomitant]
     Active Substance: CETIRIZINE HYDROCHLORIDE
     Dosage: 20 MG
     Route: 048
  6. LORAZEPAM [Concomitant]
     Active Substance: LORAZEPAM
     Dosage: 0.5 MG, AS NEEDED
     Route: 048
  7. PANTOPRAZOLE [Concomitant]
     Active Substance: PANTOPRAZOLE
     Dosage: 40 MG, 1X/DAY
     Route: 048
  8. PREDNISONE [Concomitant]
     Active Substance: PREDNISONE
     Dosage: 30 MG, 1X/DAY
     Route: 048
  9. PREDNISONE [Concomitant]
     Active Substance: PREDNISONE
     Dosage: 1 DF (1 AND 5MG)
     Route: 048
  10. PROLIA [Concomitant]
     Active Substance: DENOSUMAB
     Dosage: 1 DF EVERY 6 MONTHS 60 MG/ML
     Route: 065
  11. ALBUTEROL SULFATE [Concomitant]
     Active Substance: ALBUTEROL SULFATE
     Dosage: 100 UG, AS NEEDED
     Route: 065
  12. SOFLAX [DOCUSATE SODIUM] [Concomitant]
     Dosage: 100 MG, AS NEEDED
     Route: 065
  13. SYMBICORT [Concomitant]
     Active Substance: BUDESONIDE\FORMOTEROL FUMARATE DIHYDRATE
     Dosage: 1 DF, 2X/DAY (DOSAGE UNKNOWN)
     Route: 065
  14. VENTOLIN [Concomitant]
     Active Substance: ALBUTEROL SULFATE
     Dosage: 100 UG, EVERY 4 HOURS (1-2 PUFFS EVERY 4 H AS NEEDED)
     Route: 055
  15. VITAMIN D3 [Concomitant]
     Active Substance: CHOLECALCIFEROL
     Dosage: 25 UG, 1X/DAY
     Route: 048

REACTIONS (3)
  - Dependence on oxygen therapy [Unknown]
  - Off label use [Unknown]
  - Condition aggravated [Recovered/Resolved]

NARRATIVE: CASE EVENT DATE: 20211101
